FAERS Safety Report 16366442 (Version 1)
Quarter: 2019Q2

REPORT INFORMATION
  Report Type: Spontaneous
  Country: IE (occurrence: IE)
  Receive Date: 20190529
  Receipt Date: 20190529
  Transmission Date: 20190711
  Serious: Yes (Hospitalization)
  Sender: FDA-Public Use
  Company Number: IE-TEVA-2019-IE-1055318

PATIENT
  Age: 15 Year
  Sex: Female

DRUGS (3)
  1. SERTRALINE  (GENERIC) [Suspect]
     Active Substance: SERTRALINE HYDROCHLORIDE
     Indication: DEPRESSION
  2. MELATONIN (G) [Concomitant]
     Indication: INSOMNIA
  3. FLUDROCORTISONE (G) [Concomitant]

REACTIONS (1)
  - Loss of consciousness [Unknown]
